FAERS Safety Report 8927455 (Version 4)
Quarter: 2013Q1

REPORT INFORMATION
  Report Type: Report from Study
  Country: JP (occurrence: JP)
  Receive Date: 20121127
  Receipt Date: 20130114
  Transmission Date: 20140127
  Serious: Yes (Hospitalization, Other)
  Sender: FDA-Public Use
  Company Number: JP-JNJFOC-20121015393

PATIENT
  Age: 78 Year
  Sex: Male
  Weight: 37 kg

DRUGS (5)
  1. REMINYL [Suspect]
     Indication: DEMENTIA ALZHEIMER^S TYPE
     Route: 048
     Dates: start: 20120501, end: 20120529
  2. REMINYL [Suspect]
     Indication: DEMENTIA ALZHEIMER^S TYPE
     Route: 048
     Dates: start: 20120402, end: 20120430
  3. ALEVIATIN [Suspect]
     Indication: EPILEPSY
     Route: 048
     Dates: start: 20120428, end: 20120521
  4. TIAPRIDE HYDROCHLORIDE [Concomitant]
     Indication: DEMENTIA ALZHEIMER^S TYPE
     Route: 048
     Dates: start: 20120402, end: 20120516
  5. SULBACTAM SODIUM/AMPICILLIN SODIUM [Concomitant]
     Indication: PNEUMONIA ASPIRATION
     Route: 042
     Dates: start: 20120528, end: 20120529

REACTIONS (4)
  - Epilepsy [Recovering/Resolving]
  - Pneumonia aspiration [Recovered/Resolved]
  - Rash [Recovered/Resolved]
  - Hepatic function abnormal [Not Recovered/Not Resolved]
